FAERS Safety Report 4582255-6 (Version None)
Quarter: 2005Q1

REPORT INFORMATION
  Report Type: 
  Country: None (occurrence: None)
  Receive Date: 20050127
  Receipt Date: 20040907
  Transmission Date: 20050727
  Serious: No
  Sender: FDA-Public Use
  Company Number: USA040977560

PATIENT
  Age: 32 Year
  Sex: Female
  Weight: 85 kg

DRUGS (4)
  1. PROZAC [Suspect]
     Indication: PREMENSTRUAL SYNDROME
     Dosage: 20 MG
     Dates: start: 20030201
  2. STRATTERA [Suspect]
     Indication: ATTENTION DEFICIT/HYPERACTIVITY DISORDER
     Dosage: 40 MG
     Dates: start: 20040905
  3. FLUOXETINE [Concomitant]
  4. TRICOR [Concomitant]

REACTIONS (4)
  - HYPERHIDROSIS [None]
  - NAUSEA [None]
  - PARAESTHESIA [None]
  - PILOERECTION [None]
